FAERS Safety Report 5268607-X (Version None)
Quarter: 2007Q1

REPORT INFORMATION
  Report Type: 
  Country: None (occurrence: None)
  Receive Date: 20070315
  Receipt Date: 20070315
  Transmission Date: 20070707
  Serious: Yes (Hospitalization)
  Sender: FDA-Public Use
  Company Number: None

PATIENT
  Age: 82 Year
  Sex: Female
  Weight: 57 kg

DRUGS (2)
  1. DILTIAZEM [Suspect]
     Indication: ATRIAL FIBRILLATION
     Dosage: 100 MG PRN IV DRIP
     Route: 041
     Dates: start: 20070309, end: 20070310
  2. DILTIAZEM [Suspect]
     Indication: ATRIAL FIBRILLATION
     Dosage: 240 MG DAILY PO
     Route: 048
     Dates: start: 20070312, end: 20070313

REACTIONS (1)
  - RASH [None]
